FAERS Safety Report 19918811 (Version 1)
Quarter: 2021Q4

REPORT INFORMATION
  Report Type: Spontaneous
  Country: US (occurrence: US)
  Receive Date: 20211004
  Receipt Date: 20211004
  Transmission Date: 20220303
  Serious: Yes (Other)
  Sender: FDA-Public Use
  Company Number: US-CELGENE-USA-20210907821

PATIENT
  Sex: Male

DRUGS (5)
  1. THALOMID [Suspect]
     Active Substance: THALIDOMIDE
     Indication: Plasma cell myeloma
     Dosage: 300 MG
     Route: 048
     Dates: start: 201303
  2. THALOMID [Suspect]
     Active Substance: THALIDOMIDE
     Dosage: 200 MG
     Route: 048
     Dates: start: 201309
  3. THALOMID [Suspect]
     Active Substance: THALIDOMIDE
     Dosage: 300 MG
     Route: 048
     Dates: start: 201412
  4. THALOMID [Suspect]
     Active Substance: THALIDOMIDE
     Dosage: 150 MG
     Route: 048
     Dates: start: 202010
  5. THALOMID [Suspect]
     Active Substance: THALIDOMIDE
     Dosage: 300 MG
     Route: 048
     Dates: start: 202011

REACTIONS (1)
  - Neuropathy peripheral [Unknown]
